FAERS Safety Report 9361932 (Version 2)
Quarter: 2013Q2

REPORT INFORMATION
  Report Type: Spontaneous
  Country: FR (occurrence: FR)
  Receive Date: 20130621
  Receipt Date: 20130624
  Transmission Date: 20140414
  Serious: Yes (Life-Threatening, Hospitalization, Other)
  Sender: FDA-Public Use
  Company Number: FR-ASTRAZENECA-2013SE47413

PATIENT
  Age: 68 Year
  Sex: Female

DRUGS (5)
  1. XEROQUEL [Suspect]
     Route: 048
     Dates: start: 20130411, end: 20130601
  2. TERCIAN [Suspect]
     Route: 048
     Dates: start: 20130419, end: 20130601
  3. DEPAMIDE [Suspect]
     Route: 048
     Dates: start: 20130510, end: 20130601
  4. XANAX [Concomitant]
     Route: 048
     Dates: start: 20130410, end: 20130601
  5. IMOVANE [Concomitant]
     Route: 048
     Dates: start: 2013, end: 2013

REACTIONS (17)
  - Tonsillitis [Unknown]
  - Agitation [Unknown]
  - Oxygen saturation decreased [Unknown]
  - Coma scale abnormal [Unknown]
  - Hyperpyrexia [Unknown]
  - Rales [Unknown]
  - Periorbital cellulitis [Unknown]
  - Dermo-hypodermitis [Unknown]
  - Sinusitis [Unknown]
  - Bone marrow failure [Recovered/Resolved]
  - Hyponatraemia [Unknown]
  - Bone marrow toxicity [Unknown]
  - Leukopenia [Recovering/Resolving]
  - Agranulocytosis [Recovering/Resolving]
  - Psychomotor hyperactivity [Unknown]
  - Convulsion [Unknown]
  - Blood pressure decreased [Unknown]
